FAERS Safety Report 26167597 (Version 1)
Quarter: 2025Q4

REPORT INFORMATION
  Report Type: Spontaneous
  Country: EU (occurrence: EU)
  Receive Date: 20251217
  Receipt Date: 20251217
  Transmission Date: 20260117
  Serious: Yes (Hospitalization, Other)
  Sender: CHEPLAPHARM
  Company Number: EU-CHEPLA-2025014154

PATIENT
  Age: 41 Year
  Sex: Female

DRUGS (7)
  1. OLANZAPINE [Suspect]
     Active Substance: OLANZAPINE
     Indication: Psychotic disorder
     Dosage: DAILY DOSE: 20 MILLIGRAM
  2. OLANZAPINE [Suspect]
     Active Substance: OLANZAPINE
     Indication: Cotard^s syndrome
     Dosage: DAILY DOSE: 20 MILLIGRAM
  3. VENLAFAXINE [Suspect]
     Active Substance: VENLAFAXINE HYDROCHLORIDE
     Indication: Psychotic disorder
     Dosage: UPTO 225 MG/DAY?DAILY DOSE: 225 MILLIGRAM
  4. VENLAFAXINE [Suspect]
     Active Substance: VENLAFAXINE HYDROCHLORIDE
     Indication: Cotard^s syndrome
     Dosage: UPTO 225 MG/DAY?DAILY DOSE: 225 MILLIGRAM
  5. LORAZEPAM [Suspect]
     Active Substance: LORAZEPAM
     Indication: Psychotic disorder
     Dosage: UP TO 2 MG/DAY?DAILY DOSE: 2 MILLIGRAM
  6. LORAZEPAM [Suspect]
     Active Substance: LORAZEPAM
     Indication: Cotard^s syndrome
     Dosage: UP TO 2 MG/DAY?DAILY DOSE: 2 MILLIGRAM
  7. RISPERIDONE [Suspect]
     Active Substance: RISPERIDONE
     Indication: Psychotic disorder
     Dosage: UP TO 6 MG/DAY?DAILY DOSE: 6 MILLIGRAM

REACTIONS (1)
  - Suicide attempt [Unknown]
